FAERS Safety Report 16141469 (Version 1)
Quarter: 2019Q2

REPORT INFORMATION
  Report Type: Spontaneous
  Country: FR (occurrence: FR)
  Receive Date: 20190401
  Receipt Date: 20190401
  Transmission Date: 20190711
  Serious: Yes (Life-Threatening)
  Sender: FDA-Public Use
  Company Number: FR-TEVA-2019-FR-1031070

PATIENT
  Age: 65 Year
  Sex: Male
  Weight: 76 kg

DRUGS (17)
  1. VELBE [Suspect]
     Active Substance: VINBLASTINE SULFATE
     Indication: HODGKIN^S DISEASE
     Dosage: 11 MILLIGRAM DAILY;
     Route: 042
     Dates: start: 20070507, end: 20070507
  2. VOGALENE [Concomitant]
     Active Substance: METOPIMAZINE
     Dates: start: 20070507, end: 20070507
  3. BLEOMYCINE [Suspect]
     Active Substance: BLEOMYCIN SULFATE
     Dosage: 18 MILLIGRAM DAILY;
     Route: 042
     Dates: start: 20070520, end: 20070520
  4. GRANOCYTE [Suspect]
     Active Substance: LENOGRASTIM
     Dosage: 34 DOSAGE FORM FROM J5 TO J9 AND FROM J18 TO J22 OF EACH CYCLE
     Route: 042
     Dates: start: 20070615, end: 20070619
  5. ZOPHREN [Concomitant]
     Active Substance: ONDANSETRON
     Dates: start: 20070507, end: 20070611
  6. SOLMEDROL [Concomitant]
     Dates: start: 20070507, end: 20070611
  7. BLEOMYCINE [Suspect]
     Active Substance: BLEOMYCIN SULFATE
     Route: 042
     Dates: start: 20070611, end: 20070611
  8. VELBE [Suspect]
     Active Substance: VINBLASTINE SULFATE
     Dosage: 11 MILLIGRAM DAILY;
     Route: 042
     Dates: start: 20070611, end: 20070611
  9. GRANOCYTE [Suspect]
     Active Substance: LENOGRASTIM
     Dosage: 34 DOSAGE FORM FROM J5 TO J9 AND FROM J18 TO J22 OF EACH CYCLE
     Route: 042
     Dates: start: 20070511, end: 20070515
  10. GRANOCYTE [Suspect]
     Active Substance: LENOGRASTIM
     Dosage: 34 DOSAGE FORM FROM J5 TO J9 AND FROM J18 TO J22 OF EACH CYCLE
     Route: 042
     Dates: start: 20070524, end: 20070528
  11. VELBE [Suspect]
     Active Substance: VINBLASTINE SULFATE
     Dosage: 11 MILLIGRAM DAILY;
     Route: 042
     Dates: start: 20070520, end: 20070520
  12. DELTICENE [Concomitant]
     Dosage: 690 MILLIGRAM DAILY;
     Route: 042
     Dates: start: 20070507, end: 20070611
  13. POLARAMINE [Concomitant]
     Active Substance: DEXCHLORPHENIRAMINE MALEATE
     Dates: start: 20070507, end: 20070611
  14. BLEOMYCINE [Suspect]
     Active Substance: BLEOMYCIN SULFATE
     Indication: HODGKIN^S DISEASE
     Dosage: 18 MILLIGRAM DAILY;
     Route: 042
     Dates: start: 20070507, end: 20070507
  15. DOXORUBINE [Concomitant]
     Active Substance: DOXORUBICIN
     Dosage: 46 MILLIGRAM DAILY;
     Route: 042
     Dates: start: 20070507, end: 20070611
  16. CARDIOXANE [Concomitant]
     Active Substance: DEXRAZOXANE HYDROCHLORIDE
     Dates: start: 20070507, end: 20070611
  17. PERFALGAN [Concomitant]
     Active Substance: ACETAMINOPHEN
     Dates: start: 20070507, end: 20070607

REACTIONS (1)
  - Acute respiratory distress syndrome [Not Recovered/Not Resolved]

NARRATIVE: CASE EVENT DATE: 20070625
